FAERS Safety Report 10033162 (Version 2)
Quarter: 2014Q2

REPORT INFORMATION
  Report Type: Spontaneous
  Country: GB (occurrence: GB)
  Receive Date: 20140324
  Receipt Date: 20140408
  Transmission Date: 20141212
  Serious: Yes (Life-Threatening, Hospitalization)
  Sender: FDA-Public Use
  Company Number: GB-WATSON-2014-05498

PATIENT
  Age: 49 Year
  Sex: Female

DRUGS (2)
  1. FIBRISTAL [Suspect]
     Indication: UTERINE LEIOMYOMA
     Dosage: UNK, UNKNOWN
     Route: 065
     Dates: start: 20140222, end: 20140225
  2. LEVOTHYROXINE [Concomitant]
     Indication: HYPOTHYROIDISM
     Dosage: UNK
     Route: 065

REACTIONS (2)
  - Uterine haemorrhage [Unknown]
  - Haemorrhagic anaemia [Unknown]
